FAERS Safety Report 24657569 (Version 3)
Quarter: 2024Q4

REPORT INFORMATION
  Report Type: Report from Study
  Country: US (occurrence: US)
  Receive Date: 20241125
  Receipt Date: 20241220
  Transmission Date: 20250115
  Serious: Yes (Death)
  Sender: ULTRAGENYX PHARMACEUTICAL
  Company Number: US-ULTRAGENYX PHARMACEUTICAL INC.-US-UGX-24-02207

PATIENT
  Age: 0 Year
  Sex: Male
  Weight: 4.77 kg

DRUGS (2)
  1. DOJOLVI [Suspect]
     Active Substance: TRIHEPTANOIN
     Indication: Very long-chain acyl-coenzyme A dehydrogenase deficiency
     Dosage: 1 MILLILITER, QID (4 TIME A DAY)
     Route: 048
     Dates: start: 20241025
  2. LEVOCARNITINE [Concomitant]
     Active Substance: LEVOCARNITINE
     Indication: Product used for unknown indication
     Dosage: 1 MILLILITER, QD

REACTIONS (3)
  - Hypoglycaemia [Fatal]
  - Cardiac arrest [Fatal]
  - Vomiting [Fatal]

NARRATIVE: CASE EVENT DATE: 20241115
